FAERS Safety Report 9181796 (Version 1)
Quarter: 2013Q1

REPORT INFORMATION
  Report Type: Spontaneous
  Country: US (occurrence: None)
  Receive Date: 20130321
  Receipt Date: 20130321
  Transmission Date: 20140127
  Serious: Yes (Other)
  Sender: FDA-Public Use
  Company Number: None

PATIENT
  Sex: Male

DRUGS (1)
  1. EGRIFTA [Suspect]
     Route: 058
     Dates: start: 20110603, end: 201210

REACTIONS (1)
  - Carpal tunnel syndrome [None]
